FAERS Safety Report 19844680 (Version 2)
Quarter: 2021Q4

REPORT INFORMATION
  Report Type: Spontaneous
  Country: IN (occurrence: IN)
  Receive Date: 20210916
  Receipt Date: 20211125
  Transmission Date: 20220303
  Serious: No
  Sender: FDA-Public Use
  Company Number: IN-PFIZER INC-202101112049

PATIENT
  Sex: Female

DRUGS (12)
  1. AVIBACTAM SODIUM\CEFTAZIDIME [Suspect]
     Active Substance: AVIBACTAM SODIUM\CEFTAZIDIME
     Indication: Product used for unknown indication
     Dosage: UNK
  2. CRESEMBA [Suspect]
     Active Substance: ISAVUCONAZONIUM SULFATE
     Indication: Mucormycosis
     Dosage: ACTUAL:200 MG, ONCE A DAY (X 2 MONTHS)
     Route: 048
     Dates: start: 20210824
  3. CRESEMBA [Suspect]
     Active Substance: ISAVUCONAZONIUM SULFATE
     Dosage: ACTUAL:200 MG, ONCE A DAY (OD)
     Route: 048
     Dates: start: 20210609
  4. AMPHOTERICIN B [Suspect]
     Active Substance: AMPHOTERICIN B
     Indication: Product used for unknown indication
     Dosage: UNK
  5. AMPHOTERICIN B [Concomitant]
     Active Substance: AMPHOTERICIN B
     Dosage: UNK
  6. VANCOMYCIN [Concomitant]
     Active Substance: VANCOMYCIN
     Dosage: UNK
  7. SOLSPRE [Concomitant]
     Dosage: 2 PUFFS 4X/DAY (1-1-1-1)
     Route: 045
     Dates: start: 20210723, end: 20210730
  8. ALDACTONE [Concomitant]
     Active Substance: SPIRONOLACTONE
     Dosage: UNK, 1X/DAY (1-0-0)
     Route: 048
     Dates: start: 20210723, end: 20210729
  9. CARVEDILOL [Concomitant]
     Active Substance: CARVEDILOL
     Dosage: AFTER FOOD
     Route: 048
     Dates: start: 20210723, end: 20210729
  10. RAMIPRIL [Concomitant]
     Active Substance: RAMIPRIL
     Dosage: ACTUAL: (0-0-1)
     Dates: start: 20210723, end: 20210729
  11. ULTRACET [Concomitant]
     Active Substance: ACETAMINOPHEN\TRAMADOL HYDROCHLORIDE
     Indication: Headache
     Dosage: AS NEEDED (PRN) AFTER FOOD
     Dates: start: 20210723, end: 20210729
  12. LASIX [Concomitant]
     Active Substance: FUROSEMIDE
     Dosage: UNK, 1X/DAY (1-0-0) - AFTER FOOD
     Route: 048
     Dates: start: 20210723, end: 20210729

REACTIONS (1)
  - No adverse event [Unknown]
